FAERS Safety Report 9206351 (Version 3)
Quarter: 2014Q1

REPORT INFORMATION
  Report Type: Report from Study
  Country: DE (occurrence: DE)
  Receive Date: 20130403
  Receipt Date: 20140213
  Transmission Date: 20141002
  Serious: Yes (Other)
  Sender: FDA-Public Use
  Company Number: PHHY2013DE031259

PATIENT
  Sex: Female

DRUGS (5)
  1. AMN107 [Suspect]
     Indication: CHRONIC MYELOID LEUKAEMIA
     Dosage: 600 MG, PER DAY
     Route: 048
     Dates: start: 20121129, end: 20130218
  2. MICARDISPLUS [Concomitant]
     Indication: HYPERTENSION
     Dosage: 1 DF, QD
     Route: 048
     Dates: start: 20050101
  3. BISOPROLOL [Concomitant]
     Indication: HYPERTENSION
     Dosage: 5 MG, UNK
     Route: 048
     Dates: start: 20050101
  4. BISOPROLOL [Concomitant]
     Dosage: UNK
     Dates: start: 20050101
  5. THYRONAJOD [Concomitant]
     Dosage: 75 UG, QD
     Route: 048
     Dates: start: 20050101

REACTIONS (6)
  - Chronic myeloid leukaemia transformation [Recovering/Resolving]
  - Thrombocytopenia [Not Recovered/Not Resolved]
  - Anaemia [Recovering/Resolving]
  - Blast cell count increased [Recovering/Resolving]
  - White blood cell count increased [Recovering/Resolving]
  - Blood lactate dehydrogenase increased [Recovering/Resolving]
